FAERS Safety Report 6301838-6 (Version None)
Quarter: 2009Q3

REPORT INFORMATION
  Report Type: 
  Country: None (occurrence: None)
  Receive Date: 20090807
  Receipt Date: 20090730
  Transmission Date: 20100115
  Serious: Yes (Hospitalization)
  Sender: FDA-Public Use
  Company Number: DE-ROCHE-587010

PATIENT
  Sex: Female
  Weight: 59.7 kg

DRUGS (5)
  1. MYCOPHENOLATE MOFETIL [Suspect]
     Indication: DRUG USE FOR UNKNOWN INDICATION
     Route: 065
     Dates: start: 20070307
  2. VALGANCICLOVIR HCL [Suspect]
     Dosage: ON 14 JUNE 2007, THE PATIENT RECEIVED LAST DOSE PRIOR TO SAE.
     Route: 065
  3. TORSEMIDE [Suspect]
     Indication: DRUG USE FOR UNKNOWN INDICATION
     Route: 065
     Dates: start: 20071205
  4. METOPROLOL TARTRATE [Suspect]
     Indication: DRUG USE FOR UNKNOWN INDICATION
     Route: 065
     Dates: start: 20070329
  5. CYCLOSPORINE [Suspect]
     Indication: DRUG USE FOR UNKNOWN INDICATION
     Dosage: DRUG REPORTED : CYCLOSPORIN A MICROEMULSION.
     Route: 065
     Dates: start: 20070307

REACTIONS (1)
  - CHOLESTASIS [None]
